FAERS Safety Report 16362643 (Version 3)
Quarter: 2019Q3

REPORT INFORMATION
  Report Type: Spontaneous
  Country: ES (occurrence: ES)
  Receive Date: 20190528
  Receipt Date: 20190819
  Transmission Date: 20191004
  Serious: Yes (Hospitalization)
  Sender: FDA-Public Use
  Company Number: ES-CELGENEUS-ESP-20190209794

PATIENT
  Age: 68 Year
  Sex: Male

DRUGS (9)
  1. TIGECICLINA [Concomitant]
     Active Substance: TIGECYCLINE
     Indication: INFECTION
     Dosage: 100 MILLIGRAM
     Route: 041
     Dates: start: 20190224, end: 20190313
  2. MENOPREM [Concomitant]
     Indication: FEBRILE NEUTROPENIA
     Route: 065
  3. TEICOPLANINA [Concomitant]
     Active Substance: TEICOPLANIN
     Indication: PNEUMONIA
  4. VORICONAZOL [Concomitant]
     Active Substance: VORICONAZOLE
     Indication: ASPERGILLUS INFECTION
     Dosage: 400 MILLIGRAM
     Route: 048
     Dates: start: 20190102, end: 20190109
  5. AZACITIDINE. [Suspect]
     Active Substance: AZACITIDINE
     Indication: ACUTE MYELOID LEUKAEMIA
     Dosage: 140 MILLIGRAM
     Route: 058
     Dates: start: 20190115, end: 20190123
  6. RUXOLITINIB [Suspect]
     Active Substance: RUXOLITINIB
     Indication: POLYCYTHAEMIA VERA
     Dosage: 10 MILLIGRAM
     Route: 048
     Dates: start: 20181024, end: 20190312
  7. MENOPREM [Concomitant]
     Indication: INFECTION
     Dosage: 3 MILLIGRAM
     Route: 041
     Dates: start: 20190128, end: 20190314
  8. CASPOFUNGINA [Concomitant]
     Indication: ASPERGILLUS INFECTION
     Dosage: 50 MILLIGRAM
     Route: 041
     Dates: start: 20181229, end: 20190102
  9. TEICOPLANINA [Concomitant]
     Active Substance: TEICOPLANIN
     Indication: INFECTION
     Dosage: 6 MILLIGRAM/KILOGRAM
     Route: 041
     Dates: start: 20190128, end: 20190314

REACTIONS (1)
  - Febrile neutropenia [Not Recovered/Not Resolved]

NARRATIVE: CASE EVENT DATE: 20190128
